FAERS Safety Report 4464898-3 (Version None)
Quarter: 2004Q4

REPORT INFORMATION
  Report Type: 
  Country: None (occurrence: None)
  Receive Date: 20041004
  Receipt Date: 20040128
  Transmission Date: 20050328
  Serious: Yes (Hospitalization)
  Sender: FDA-Public Use
  Company Number: 358227

PATIENT
  Age: 19 Year
  Sex: Female
  Weight: 54.5 kg

DRUGS (5)
  1. COREG [Suspect]
     Indication: CARDIOMYOPATHY
     Dosage: 6.25MG TWICE PER DAY
     Route: 048
  2. LISINOPRIL [Concomitant]
     Indication: CARDIOMYOPATHY
     Dosage: 5MG TWICE PER DAY
     Route: 048
  3. ALDACTONE [Concomitant]
     Indication: CARDIOMYOPATHY
     Dosage: 25MG PER DAY
     Route: 048
  4. LASIX [Concomitant]
     Indication: CARDIOMYOPATHY
     Dosage: 40MG PER DAY
     Route: 048
  5. DIGOXIN [Concomitant]
     Indication: CARDIOMYOPATHY
     Dosage: .125MG PER DAY
     Route: 048

REACTIONS (2)
  - BLOOD PRESSURE DECREASED [None]
  - DRUG INEFFECTIVE [None]
